FAERS Safety Report 8495925-4 (Version None)
Quarter: 2012Q3

REPORT INFORMATION
  Report Type: 
  Country: None (occurrence: None)
  Receive Date: 20120709
  Receipt Date: 20120629
  Transmission Date: 20120928
  Serious: Yes (Death, Hospitalization)
  Sender: FDA-Public Use
  Company Number: US-GLAXOSMITHKLINE-A0883891A

PATIENT
  Age: 58 Year
  Sex: Male
  Weight: 116.8 kg

DRUGS (6)
  1. LIPITOR [Concomitant]
  2. AVANDIA [Suspect]
     Indication: DIABETES MELLITUS
     Dosage: 8MG PER DAY
     Route: 048
     Dates: start: 20030820, end: 20070401
  3. VIAGRA [Concomitant]
  4. ANDROGEL [Concomitant]
  5. GLUCOVANCE [Concomitant]
  6. ACTOS [Concomitant]
     Dates: end: 20050715

REACTIONS (4)
  - HYPERTENSION [None]
  - MYOCARDIAL ISCHAEMIA [None]
  - HYPOXIC-ISCHAEMIC ENCEPHALOPATHY [None]
  - VENTRICULAR FIBRILLATION [None]
